FAERS Safety Report 7466106-8 (Version None)
Quarter: 2011Q2

REPORT INFORMATION
  Report Type: 
  Country: None (occurrence: None)
  Receive Date: 20110509
  Receipt Date: 20110503
  Transmission Date: 20111010
  Serious: Yes (Hospitalization)
  Sender: FDA-Public Use
  Company Number: US-ROCHE-770372

PATIENT
  Sex: Female
  Weight: 70.8 kg

DRUGS (24)
  1. PREVACID [Concomitant]
     Dosage: FREQUENCY: QD
     Dates: start: 20061122
  2. CALCIUM [Concomitant]
     Dates: start: 20030101
  3. LISINOPRIL [Concomitant]
     Dates: start: 20080508
  4. ZOLOFT [Concomitant]
     Dates: start: 20080220
  5. FOLIC ACID [Concomitant]
     Dates: start: 20030101
  6. VITAMIN D [Concomitant]
     Dosage: FREQUENCY: QD
     Dates: start: 20090215
  7. ASPIRIN [Concomitant]
     Dosage: FREQUENCY: QD
     Dates: start: 20080508
  8. SEPTRA DS [Concomitant]
     Dates: start: 20080109, end: 20080125
  9. TRAZODONE [Concomitant]
     Dates: start: 20030101
  10. SINGULAIR [Concomitant]
     Dosage: DRUG: SINEGUAN, TDD: 50MG HS
     Dates: start: 20090211
  11. PAXIL [Concomitant]
     Dosage: FREQUENCY: QD
     Dates: start: 20080719
  12. ACTEMRA [Suspect]
     Dosage: DATE OF LAST DOSE PRIOR TO SAE: 09 MARCH 2011
     Route: 042
     Dates: start: 20050928
  13. METHOTREXATE [Concomitant]
  14. ASPIRIN [Concomitant]
     Dates: start: 20080510
  15. VICODIN [Concomitant]
     Dates: start: 20040501
  16. METHOTREXATE [Concomitant]
     Dates: start: 20090119
  17. MULTIPLE VITS [Concomitant]
     Dates: start: 20030101
  18. ACTONEL [Concomitant]
     Dates: start: 20090119
  19. SUPER B COMPLEX [Concomitant]
     Dosage: FREQUENCY: QD
     Dates: start: 20080901
  20. FOLATE/THIAMINE [Concomitant]
     Dosage: DRUG: FOLATE
     Dates: start: 20030101
  21. ACTONEL [Concomitant]
     Dosage: AT NIGHT
     Dates: start: 20040216, end: 20061126
  22. ACTEMRA [Suspect]
     Indication: RHEUMATOID ARTHRITIS
     Dosage: PATIENT WAS PREVIOUSLY ENROLLED IN WA18063 STUDY.
     Route: 042
  23. EXCEDRIN (MIGRAINE) [Concomitant]
     Dosage: DRUG NAME REPORTED AS: EXERDRIN MIGRAINE DOSAGE REGIMEN REPORTED AS: 1 TO 2 PER DAY.
     Dates: start: 20051021
  24. OXYGEN [Concomitant]
     Dosage: 21 LITER/ NIGHT
     Dates: start: 20040101

REACTIONS (2)
  - INFECTIVE EXACERBATION OF CHRONIC OBSTRUCTIVE AIRWAYS DISEASE [None]
  - CHEST PAIN [None]
